FAERS Safety Report 6234992-5 (Version None)
Quarter: 2009Q2

REPORT INFORMATION
  Report Type: 
  Country: None (occurrence: None)
  Receive Date: 20090618
  Receipt Date: 20090615
  Transmission Date: 20091009
  Serious: Yes (Other)
  Sender: FDA-Public Use
  Company Number: IE-WYE-G02101908

PATIENT
  Age: 35 Year
  Sex: Male

DRUGS (11)
  1. EFFEXOR XR [Suspect]
     Indication: DEPRESSION
     Route: 048
     Dates: start: 20080401, end: 20080101
  2. EFFEXOR XR [Suspect]
     Dosage: 225MG, FREQUENCY UNSPECIFIED
     Route: 048
     Dates: start: 20080101, end: 20080716
  3. DALMANE [Concomitant]
     Dosage: UNKNOWN
  4. DIAZEPAM [Concomitant]
     Dosage: UNKNOWN
  5. EFFEXOR [Suspect]
     Indication: DEPRESSION
     Dosage: 18.75 MG (1/2 TABLET) FRQUENY UNKNOWN
     Route: 048
     Dates: start: 20080101, end: 20080914
  6. EFFEXOR [Suspect]
     Dosage: 9.375 MG (1/4 TABLET) FREQUENCY UNKNOWN
     Route: 048
     Dates: start: 20080915
  7. COLOFAC [Concomitant]
     Dosage: UNKNOWN
  8. MOTILIUM [Concomitant]
     Dosage: UNKNOWN
  9. IMODIUM [Concomitant]
     Dosage: UNKNOWN
  10. METHADONE [Concomitant]
     Dosage: UNKNOWN
  11. NEXIUM [Concomitant]
     Dosage: UNKNOWN

REACTIONS (2)
  - DRUG WITHDRAWAL SYNDROME [None]
  - FORMICATION [None]
